FAERS Safety Report 22104489 (Version 1)
Quarter: 2023Q1

REPORT INFORMATION
  Report Type: Spontaneous
  Country: DE (occurrence: DE)
  Receive Date: 20230316
  Receipt Date: 20230316
  Transmission Date: 20230418
  Serious: Yes (Other)
  Sender: FDA-Public Use
  Company Number: None

PATIENT
  Sex: Male
  Weight: 3 kg

DRUGS (1)
  1. CYTOTEC [Suspect]
     Active Substance: MISOPROSTOL
     Indication: Labour induction
     Dosage: UNK
     Route: 064
     Dates: start: 20131031, end: 20131031

REACTIONS (6)
  - Foetal exposure during delivery [Unknown]
  - Foetal distress syndrome [Recovered/Resolved with Sequelae]
  - Foetal heart rate decreased [Recovered/Resolved with Sequelae]
  - Mental impairment [Not Recovered/Not Resolved]
  - Educational problem [Not Recovered/Not Resolved]
  - Reappearance of infantile reflexes [Not Recovered/Not Resolved]

NARRATIVE: CASE EVENT DATE: 20131031
